FAERS Safety Report 12197724 (Version 1)
Quarter: 2016Q1

REPORT INFORMATION
  Report Type: Report from Study
  Country: GB (occurrence: GB)
  Receive Date: 20160322
  Receipt Date: 20160322
  Transmission Date: 20160526
  Serious: Yes (Other)
  Sender: FDA-Public Use
  Company Number: GB-ROCHE-1729545

PATIENT
  Sex: Female

DRUGS (2)
  1. METHOTREXATE [Concomitant]
     Active Substance: METHOTREXATE
  2. RITUXIMAB [Suspect]
     Active Substance: RITUXIMAB
     Indication: RHEUMATOID ARTHRITIS
     Dosage: LAST INFUSION ON 20/MAY/2015
     Route: 042
     Dates: start: 20120614

REACTIONS (1)
  - Invasive ductal breast carcinoma [Unknown]

NARRATIVE: CASE EVENT DATE: 20150708
